FAERS Safety Report 25506708 (Version 1)
Quarter: 2025Q3

REPORT INFORMATION
  Report Type: Spontaneous
  Country: EU (occurrence: EU)
  Receive Date: 20250702
  Receipt Date: 20250702
  Transmission Date: 20251020
  Serious: Yes (Hospitalization)
  Sender: TEVA
  Company Number: None

PATIENT
  Age: 13 Year
  Sex: Male

DRUGS (3)
  1. ACETAMINOPHEN [Suspect]
     Active Substance: ACETAMINOPHEN
     Indication: Suicide attempt
     Route: 048
     Dates: start: 20180520, end: 20180520
  2. IBUPROFEN [Suspect]
     Active Substance: IBUPROFEN
     Indication: Suicide attempt
     Route: 048
     Dates: start: 20180520, end: 20180520
  3. DIAZEPAM [Suspect]
     Active Substance: DIAZEPAM
     Indication: Suicide attempt
     Route: 048
     Dates: start: 20180520, end: 20180520

REACTIONS (3)
  - Somnolence [Recovered/Resolved]
  - Vomiting [Recovered/Resolved]
  - Intentional overdose [Recovered/Resolved]

NARRATIVE: CASE EVENT DATE: 20180520
